FAERS Safety Report 9802958 (Version 1)
Quarter: 2014Q1

REPORT INFORMATION
  Report Type: Spontaneous
  Country: US (occurrence: None)
  Receive Date: 20140106
  Receipt Date: 20140106
  Transmission Date: 20141002
  Serious: Yes (Other)
  Sender: FDA-Public Use
  Company Number: None

PATIENT
  Age: 58 Year
  Sex: Male
  Weight: 79.9 kg

DRUGS (6)
  1. TRAZODONE [Suspect]
     Dosage: (2 PILLS) QHS/BEDTIME
     Route: 048
     Dates: start: 20131231, end: 20140101
  2. WELLBUTRIN XL [Concomitant]
  3. SOMA [Concomitant]
  4. FAMOTIDINE [Concomitant]
  5. NEURONTIN [Concomitant]
  6. ATIVAN [Concomitant]

REACTIONS (2)
  - Muscle spasms [None]
  - Insomnia [None]
